FAERS Safety Report 20072627 (Version 1)
Quarter: 2021Q4

REPORT INFORMATION
  Report Type: Spontaneous
  Country: GB (occurrence: GB)
  Receive Date: 20211116
  Receipt Date: 20211116
  Transmission Date: 20220303
  Serious: Yes (Disabling, Other)
  Sender: FDA-Public Use
  Company Number: None

PATIENT
  Age: 45 Year
  Sex: Female
  Weight: 60.70 kg

DRUGS (8)
  1. MYCOPHENOLATE MOFETIL [Suspect]
     Active Substance: MYCOPHENOLATE MOFETIL
     Indication: Product used for unknown indication
     Route: 048
     Dates: start: 20190202, end: 20211028
  2. EVACAL D3 [Concomitant]
     Dosage: 1500MG/400UNIT
     Dates: start: 20210820
  3. FERROUS FUMARATE [Concomitant]
     Active Substance: FERROUS FUMARATE
     Dosage: AFTER FOOD, AS DIRECTED BY TRANSPLANT CLINIC
     Dates: start: 20210906
  4. FLUCONAZOLE [Concomitant]
     Active Substance: FLUCONAZOLE
     Dosage: FOR 7 DAYS
     Dates: start: 20211022
  5. FOLIC ACID [Concomitant]
     Active Substance: FOLIC ACID
     Dosage: ASAS DIRECTED BY TRANSPLANT CLINIC
     Dates: start: 20210906
  6. LACTULOSE [Concomitant]
     Active Substance: LACTULOSE
     Indication: Constipation
     Dosage: 3.1-3.7G/5ML. WHEN REQUIRED. ADJUST DOSE BY 5MLS AFTER 2-3 DAYS TO ACHIEVE
     Route: 048
     Dates: start: 20211007
  7. NORIDAY [Concomitant]
     Active Substance: MESTRANOL\NORETHINDRONE
     Dosage: ANNUAL REVIEW DUE OCTOBER 2020
     Dates: start: 20211021
  8. NYSTATIN [Concomitant]
     Active Substance: NYSTATIN
     Dosage: 100,000IU/ML IT IS RECOMMENDED TO KEEP THE MEDICATION IN CONTACT WITH THE AFFECTED AREAS AS
     Route: 048
     Dates: start: 20211022

REACTIONS (4)
  - Toothache [Recovered/Resolved]
  - Ear pain [Unknown]
  - Headache [Unknown]
  - Gingivitis [Unknown]

NARRATIVE: CASE EVENT DATE: 20210722
